FAERS Safety Report 18590610 (Version 1)
Quarter: 2020Q4

REPORT INFORMATION
  Report Type: Spontaneous
  Country: US (occurrence: US)
  Receive Date: 20201208
  Receipt Date: 20201208
  Transmission Date: 20210114
  Serious: No
  Sender: FDA-Public Use
  Company Number: None

PATIENT
  Age: 48 Year
  Sex: Male

DRUGS (6)
  1. ATORVASTATIN [Concomitant]
     Active Substance: ATORVASTATIN
     Dates: start: 20201116
  2. BRILINTA [Concomitant]
     Active Substance: TICAGRELOR
     Dates: start: 20201116
  3. ATENOLOL. [Concomitant]
     Active Substance: ATENOLOL
     Dates: start: 20180301
  4. MIDODRINE [Suspect]
     Active Substance: MIDODRINE
     Route: 048
     Dates: start: 20201116
  5. LEVETIRACETAM. [Concomitant]
     Active Substance: LEVETIRACETAM
     Dates: start: 20201116
  6. AMLODIPINE [Concomitant]
     Active Substance: AMLODIPINE BESYLATE
     Dates: start: 20180301

REACTIONS (3)
  - Burning sensation [None]
  - Paraesthesia oral [None]
  - Paraesthesia [None]

NARRATIVE: CASE EVENT DATE: 20201207
